FAERS Safety Report 5911680-3 (Version None)
Quarter: 2008Q4

REPORT INFORMATION
  Report Type: 
  Country: None (occurrence: None)
  Receive Date: 20081007
  Receipt Date: 20080929
  Transmission Date: 20090506
  Serious: Yes (Hospitalization)
  Sender: FDA-Public Use
  Company Number: US-ELI_LILLY_AND_COMPANY-US200809006662

PATIENT
  Sex: Female
  Weight: 99.773 kg

DRUGS (19)
  1. BYETTA [Suspect]
     Indication: TYPE 2 DIABETES MELLITUS
     Dosage: 5 UG, 2/D
     Route: 058
     Dates: start: 20060101, end: 20060101
  2. BYETTA [Suspect]
     Dosage: 10 UG, 2/D
     Route: 058
     Dates: start: 20060101, end: 20080601
  3. BYETTA [Suspect]
     Dosage: 10 UG, 2/D
     Route: 058
     Dates: start: 20080803, end: 20080827
  4. SYMLIN [Concomitant]
     Indication: DIABETES MELLITUS
     Dosage: 7 U, 2/D
     Dates: start: 20080603, end: 20080801
  5. METFORMIN HCL [Concomitant]
     Indication: DIABETES MELLITUS
     Dosage: 1000 MG, 2/D
     Dates: start: 20030101, end: 20080828
  6. METFORMIN HCL [Concomitant]
     Dosage: 1000 MG, 2/D
     Dates: start: 20080830
  7. GLIMEPIRIDE [Concomitant]
     Indication: DIABETES MELLITUS
     Dosage: 2 MG, 2/D
     Dates: start: 20050101, end: 20080828
  8. GLIMEPIRIDE [Concomitant]
     Dosage: 2 MG, 2/D
     Dates: start: 20080830
  9. DIOVAN HCT [Concomitant]
     Indication: BLOOD PRESSURE
     Dosage: 5 MG, DAILY (1/D)
     Dates: end: 20080827
  10. AVAPRO [Concomitant]
     Indication: BLOOD PRESSURE
     Dosage: 300 MG, DAILY (1/D)
     Dates: start: 20080801
  11. QUINAPRIL [Concomitant]
     Indication: BLOOD PRESSURE
     Dosage: 40 MG, 2/D
     Dates: start: 20030101
  12. IBUPROFEN [Concomitant]
     Indication: BACK PAIN
     Dosage: 800 MG, AS NEEDED
     Dates: start: 20060101
  13. TYLENOL                                 /SCH/ [Concomitant]
     Indication: BACK PAIN
     Dosage: UNK, AS NEEDED
     Dates: start: 20080901
  14. TRAMADOL HCL [Concomitant]
     Indication: BACK PAIN
     Dosage: 50 MG, OTHER
     Dates: start: 20080101, end: 20080827
  15. PROVENTIL /USA/ [Concomitant]
     Indication: ASTHMA
     Dosage: UNK, AS NEEDED
  16. PRILOSEC [Concomitant]
     Indication: DYSPEPSIA
     Dosage: 30 MG, DAILY (1/D)
     Dates: start: 20050101
  17. DICYCLOMINE [Concomitant]
     Indication: VOMITING
     Dosage: UNK, 2/D
     Dates: start: 20080807
  18. COLCHICINE [Concomitant]
     Indication: GOUT
     Dosage: 6 MG, AS NEEDED
  19. ALLOPURINOL [Concomitant]
     Indication: GOUT
     Dosage: 100 MG, DAILY (1/D)
     Dates: start: 20080624, end: 20080827

REACTIONS (24)
  - BACK PAIN [None]
  - COLITIS [None]
  - CONSTIPATION [None]
  - DEPRESSION [None]
  - DIARRHOEA [None]
  - DYSPEPSIA [None]
  - ENDOSCOPY GASTROINTESTINAL ABNORMAL [None]
  - FEELING JITTERY [None]
  - GOUT [None]
  - HEPATIC STEATOSIS [None]
  - HYPERKALAEMIA [None]
  - MALAISE [None]
  - METABOLIC ACIDOSIS [None]
  - NERVOUSNESS [None]
  - NIGHT SWEATS [None]
  - NODULE [None]
  - OEDEMA PERIPHERAL [None]
  - PRURITUS [None]
  - PYREXIA [None]
  - SCIATICA [None]
  - TENDONITIS [None]
  - URTICARIA [None]
  - VOMITING [None]
  - WEIGHT DECREASED [None]
